FAERS Safety Report 7817894-X (Version None)
Quarter: 2011Q4

REPORT INFORMATION
  Report Type: 
  Country: None (occurrence: None)
  Receive Date: 20111017
  Receipt Date: 20111013
  Transmission Date: 20120403
  Serious: Yes (Hospitalization)
  Sender: FDA-Public Use
  Company Number: US-BRISTOL-MYERS SQUIBB COMPANY-14006381

PATIENT
  Age: 51 Year
  Sex: Female
  Weight: 76 kg

DRUGS (2)
  1. CISPLATIN [Suspect]
     Route: 042
  2. ERBITUX [Suspect]
     Indication: NASOPHARYNGEAL CANCER
     Dosage: LAST DOSE:20NOV07
     Dates: start: 20071009

REACTIONS (5)
  - OESOPHAGITIS [None]
  - NEUTROPHIL COUNT DECREASED [None]
  - FEBRILE NEUTROPENIA [None]
  - PYREXIA [None]
  - BRONCHITIS [None]
